FAERS Safety Report 8396440-9 (Version None)
Quarter: 2012Q2

REPORT INFORMATION
  Report Type: 
  Country: None (occurrence: None)
  Receive Date: 20120530
  Receipt Date: 20120517
  Transmission Date: 20120825
  Serious: Yes (Other)
  Sender: FDA-Public Use
  Company Number: CA-JNJFOC-20120516181

PATIENT
  Sex: Female
  Weight: 72.58 kg

DRUGS (2)
  1. INFLIXIMAB, RECOMBINANT [Suspect]
     Route: 042
  2. INFLIXIMAB, RECOMBINANT [Suspect]
     Indication: ANKYLOSING SPONDYLITIS
     Route: 042
     Dates: start: 20111027, end: 20120322

REACTIONS (2)
  - APHONIA [None]
  - LIVER FUNCTION TEST ABNORMAL [None]
